FAERS Safety Report 14230664 (Version 2)
Quarter: 2018Q1

REPORT INFORMATION
  Report Type: Spontaneous
  Country: GB (occurrence: GB)
  Receive Date: 20171128
  Receipt Date: 20180112
  Transmission Date: 20180508
  Serious: Yes (Death)
  Sender: FDA-Public Use
  Company Number: GB-TEVA-2017-GB-826051

PATIENT
  Sex: Male

DRUGS (7)
  1. PREGABALIN. [Interacting]
     Active Substance: PREGABALIN
     Route: 065
  2. DIAZEPAM. [Interacting]
     Active Substance: DIAZEPAM
     Route: 065
  3. CODEINE [Interacting]
     Active Substance: CODEINE
     Route: 065
  4. MORPHINE [Suspect]
     Active Substance: MORPHINE
     Route: 065
  5. TEMAZEPAM. [Interacting]
     Active Substance: TEMAZEPAM
     Route: 065
  6. LEVAMISOLE [Concomitant]
     Active Substance: LEVAMISOLE
     Route: 065
  7. MIRTAZAPINE. [Concomitant]
     Active Substance: MIRTAZAPINE
     Route: 065

REACTIONS (2)
  - Toxicity to various agents [Fatal]
  - Drug interaction [Fatal]
